FAERS Safety Report 14256235 (Version 2)
Quarter: 2017Q4

REPORT INFORMATION
  Report Type: Spontaneous
  Country: JP (occurrence: JP)
  Receive Date: 20171206
  Receipt Date: 20171211
  Transmission Date: 20180321
  Serious: Yes (Other)
  Sender: FDA-Public Use
  Company Number: JP-JNJFOC-20171118712

PATIENT

DRUGS (6)
  1. RITUXIMAB. [Suspect]
     Active Substance: RITUXIMAB
     Indication: DIFFUSE LARGE B-CELL LYMPHOMA
     Route: 065
  2. DOXORUBICIN HYDROCHLORIDE. [Suspect]
     Active Substance: DOXORUBICIN HYDROCHLORIDE
     Indication: DIFFUSE LARGE B-CELL LYMPHOMA
     Route: 065
  3. CYCLOPHOSPHAMIDE. [Suspect]
     Active Substance: CYCLOPHOSPHAMIDE
     Indication: DIFFUSE LARGE B-CELL LYMPHOMA
     Route: 065
  4. DOXORUBICIN HYDROCHLORIDE. [Suspect]
     Active Substance: DOXORUBICIN HYDROCHLORIDE
     Indication: DIFFUSE LARGE B-CELL LYMPHOMA
     Route: 065
  5. VINCRISTINE [Suspect]
     Active Substance: VINCRISTINE
     Indication: DIFFUSE LARGE B-CELL LYMPHOMA
     Route: 065
  6. PREDNISONE. [Suspect]
     Active Substance: PREDNISONE
     Indication: DIFFUSE LARGE B-CELL LYMPHOMA
     Route: 065

REACTIONS (19)
  - Infection [Unknown]
  - Anaemia [Unknown]
  - Nausea [Unknown]
  - Product use in unapproved indication [Unknown]
  - Renal impairment [Unknown]
  - Cardiac failure [Unknown]
  - Fatigue [Unknown]
  - Febrile neutropenia [Unknown]
  - Constipation [Unknown]
  - Off label use [Unknown]
  - Acute coronary syndrome [Unknown]
  - Hyperglycaemia [Unknown]
  - Hepatic function abnormal [Unknown]
  - Neuropathy peripheral [Unknown]
  - Ileus [Unknown]
  - Inappropriate antidiuretic hormone secretion [Unknown]
  - Lymphopenia [Unknown]
  - Neutropenia [Unknown]
  - Thrombocytopenia [Unknown]
